FAERS Safety Report 5830196-6 (Version None)
Quarter: 2008Q3

REPORT INFORMATION
  Report Type: 
  Country: None (occurrence: None)
  Receive Date: 20080801
  Receipt Date: 20080729
  Transmission Date: 20090109
  Serious: Yes (Death, Hospitalization)
  Sender: FDA-Public Use
  Company Number: JP-GILEAD-2008-0017564

PATIENT
  Sex: Male

DRUGS (7)
  1. VIREAD [Suspect]
     Indication: HIV INFECTION
     Route: 048
     Dates: start: 20050113
  2. STOCRIN [Suspect]
     Indication: HIV INFECTION
     Route: 048
     Dates: start: 20050113
  3. EPIVIR [Suspect]
     Indication: HIV INFECTION
     Route: 048
     Dates: start: 20050113
  4. THEOPHYLLINE [Concomitant]
     Indication: ASTHMA
     Dates: start: 20071006
  5. MONTELUKAST SODIUM [Concomitant]
     Indication: ASTHMA
     Dates: start: 20071006
  6. TULOBUTEROL [Concomitant]
     Indication: ASTHMA
     Dates: start: 20071006
  7. PREDNISOLONE [Concomitant]
     Indication: ASTHMA
     Dates: start: 20070930

REACTIONS (2)
  - ASTHMA [None]
  - DEATH [None]
